APPROVED DRUG PRODUCT: CLONAZEPAM
Active Ingredient: CLONAZEPAM
Strength: 2MG
Dosage Form/Route: TABLET;ORAL
Application: A075423 | Product #003
Applicant: SUN PHARMACEUTICAL INDUSTRIES INC
Approved: Apr 27, 2001 | RLD: No | RS: No | Type: DISCN